FAERS Safety Report 8482893-4 (Version None)
Quarter: 2012Q2

REPORT INFORMATION
  Report Type: 
  Country: None (occurrence: None)
  Receive Date: 20120625
  Receipt Date: 20120611
  Transmission Date: 20120825
  Serious: Yes (Life-Threatening)
  Sender: FDA-Public Use
  Company Number: 2012-00891

PATIENT
  Age: 7 Day
  Sex: Male

DRUGS (2)
  1. CEFOTAXIME SODIUM [Suspect]
     Indication: SEPSIS
     Dosage: 100 MG/KG/DAY IN TWO DIVIDED DOSES
  2. GENTAMICIN [Concomitant]

REACTIONS (7)
  - CYANOSIS NEONATAL [None]
  - DEPRESSED LEVEL OF CONSCIOUSNESS [None]
  - HYPOTONIA NEONATAL [None]
  - BRADYCARDIA NEONATAL [None]
  - INFANTILE APNOEIC ATTACK [None]
  - BRADYPNOEA [None]
  - ANAPHYLACTIC REACTION [None]
